FAERS Safety Report 20120886 (Version 1)
Quarter: 2021Q4

REPORT INFORMATION
  Report Type: Other
  Country: MA (occurrence: None)
  Receive Date: 20211127
  Receipt Date: 20211127
  Transmission Date: 20220303
  Serious: Yes (Hospitalization)
  Sender: FDA-Public Use
  Company Number: MA-ROCHE-2964652

PATIENT
  Age: 52 Year
  Sex: Female

DRUGS (5)
  1. TOCILIZUMAB [Suspect]
     Active Substance: TOCILIZUMAB
     Indication: COVID-19
     Route: 065
  2. DEXAMETHASONE [Concomitant]
     Active Substance: DEXAMETHASONE
  3. ENOXAPARIN SODIUM [Concomitant]
     Active Substance: ENOXAPARIN SODIUM
     Dosage: ENOXAPARINE  100 UI/KG/12HRLY
  4. HUMAN PLASMA [Concomitant]
     Active Substance: HUMAN PLASMA
  5. CHLORAMPHENICOL [Concomitant]
     Active Substance: CHLORAMPHENICOL

REACTIONS (2)
  - Off label use [Unknown]
  - COVID-19 [Unknown]
